FAERS Safety Report 20984985 (Version 2)
Quarter: 2022Q3

REPORT INFORMATION
  Report Type: Spontaneous
  Country: DE (occurrence: DE)
  Receive Date: 20220621
  Receipt Date: 20220727
  Transmission Date: 20221026
  Serious: Yes (Hospitalization)
  Sender: FDA-Public Use
  Company Number: DE-NOVOPROD-916525

PATIENT
  Age: 35 Year
  Sex: Female
  Weight: 58 kg

DRUGS (2)
  1. OZEMPIC [Suspect]
     Active Substance: SEMAGLUTIDE
     Indication: Product used for unknown indication
     Dosage: 1 MG, QW
     Dates: start: 20200915, end: 20210611
  2. METFORMIN [Concomitant]
     Active Substance: METFORMIN HYDROCHLORIDE
     Indication: Type 2 diabetes mellitus
     Dosage: 1000 MG, BID (1 ? 0 ? 1 ? 0)
     Dates: start: 2012

REACTIONS (5)
  - Gastric ulcer [Unknown]
  - Hyperchromic anaemia [Unknown]
  - Hepatomegaly [Unknown]
  - Urinary tract infection [Unknown]
  - Cholelithiasis [Unknown]
